FAERS Safety Report 24540030 (Version 1)
Quarter: 2024Q4

REPORT INFORMATION
  Report Type: Spontaneous
  Country: US (occurrence: None)
  Receive Date: 20241022
  Receipt Date: 20241022
  Transmission Date: 20250114
  Serious: Yes (Death)
  Sender: Public
  Company Number: None

PATIENT
  Age: 83 Year
  Sex: Female
  Weight: 80.38 kg

DRUGS (17)
  1. REPATHA [Suspect]
     Active Substance: EVOLOCUMAB
     Indication: Hypocholesterolaemia
     Dosage: OTHER FREQUENCY : EVERY 2 WEEKS;?
     Route: 058
     Dates: start: 20220904, end: 20240829
  2. PREDNISONE [Concomitant]
     Active Substance: PREDNISONE
  3. biotin 1000mcg [Concomitant]
  4. ELIQUIS [Concomitant]
     Active Substance: APIXABAN
  5. TOPROL XL [Concomitant]
     Active Substance: METOPROLOL SUCCINATE
  6. LYRICA [Concomitant]
     Active Substance: PREGABALIN
  7. DIETARY SUPPLEMENT\UBIDECARENONE [Concomitant]
     Active Substance: DIETARY SUPPLEMENT\UBIDECARENONE
  8. COLCHICINE [Concomitant]
     Active Substance: COLCHICINE
  9. CRESTOR [Concomitant]
     Active Substance: ROSUVASTATIN CALCIUM
  10. CULTURELLE [Concomitant]
     Active Substance: LACTOBACILLUS RHAMNOSUS
  11. HUMALOG [Concomitant]
     Active Substance: INSULIN LISPRO
  12. LEVEMIR [Concomitant]
     Active Substance: INSULIN DETEMIR
  13. LEVOTHYROXINE [Concomitant]
     Active Substance: LEVOTHYROXINE
  14. VITAMINS [Concomitant]
     Active Substance: VITAMINS
  15. SENSIPAR [Concomitant]
     Active Substance: CINACALCET HYDROCHLORIDE
  16. TORSEMIDE [Concomitant]
     Active Substance: TORSEMIDE
  17. vitamin d 50,000u [Concomitant]

REACTIONS (2)
  - Disease progression [None]
  - Neoplasm malignant [None]

NARRATIVE: CASE EVENT DATE: 20240829
